FAERS Safety Report 4431006-4 (Version None)
Quarter: 2004Q3

REPORT INFORMATION
  Report Type: 
  Country: None (occurrence: None)
  Receive Date: 20040824
  Receipt Date: 20040813
  Transmission Date: 20050211
  Serious: Yes (Hospitalization)
  Sender: FDA-Public Use
  Company Number: ES-BRISTOL-MYERS SQUIBB COMPANY-12669842

PATIENT
  Age: 52 Year
  Sex: Male

DRUGS (4)
  1. SOLGOL TABS [Suspect]
     Indication: CHRONIC HEPATITIS
     Dosage: 80MG 30 TABLETS
     Route: 048
     Dates: start: 20040601
  2. CORONUR [Suspect]
     Indication: CHRONIC HEPATITIS
     Dosage: 20MG 40 TABLETS
     Route: 048
     Dates: start: 20040601
  3. SPIRONOLACTONE [Concomitant]
     Indication: CHRONIC HEPATITIS
     Route: 048
     Dates: start: 20040101
  4. HYDROXIL B12 B6 B1 [Concomitant]
     Indication: OPTIC NEURITIS
     Route: 048
     Dates: start: 20020101

REACTIONS (1)
  - BODY TEMPERATURE INCREASED [None]
